FAERS Safety Report 18590153 (Version 1)
Quarter: 2020Q4

REPORT INFORMATION
  Report Type: Spontaneous
  Country: US (occurrence: US)
  Receive Date: 20201207
  Receipt Date: 20201207
  Transmission Date: 20210114
  Serious: Yes (Hospitalization)
  Sender: FDA-Public Use
  Company Number: None

PATIENT
  Age: 74 Year
  Sex: Male

DRUGS (18)
  1. ONDANSETRON [Concomitant]
     Active Substance: ONDANSETRON
  2. SAVAYSA [Suspect]
     Active Substance: EDOXABAN TOSYLATE
     Indication: PLASMA CELL MYELOMA
     Route: 048
     Dates: start: 20201203
  3. ALPHA LIPOIC ACID [Concomitant]
     Active Substance: .ALPHA.-LIPOIC ACID
  4. XARELTO [Concomitant]
     Active Substance: RIVAROXABAN
  5. VITAMIN B5 [Concomitant]
     Active Substance: PANTOTHENIC ACID
  6. OMEGA 3 [Concomitant]
     Active Substance: OMEGA-3 FATTY ACIDS
  7. VITAMIN B12 [Concomitant]
     Active Substance: CYANOCOBALAMIN
  8. DEXAMETHASONE. [Concomitant]
     Active Substance: DEXAMETHASONE
  9. ACYCLOVIR. [Concomitant]
     Active Substance: ACYCLOVIR
  10. ALIMTA [Concomitant]
     Active Substance: PEMETREXED DISODIUM
  11. ASPIRIN. [Concomitant]
     Active Substance: ASPIRIN
  12. FISH OIL [Concomitant]
     Active Substance: FISH OIL
  13. CARBOPLATIN. [Concomitant]
     Active Substance: CARBOPLATIN
  14. MULTIVITAMIN [Concomitant]
     Active Substance: VITAMINS
  15. CALCIUM PLUS D3 [Concomitant]
  16. KETYTRUDA [Concomitant]
  17. FLOMAX [Concomitant]
     Active Substance: TAMSULOSIN HYDROCHLORIDE
  18. LIPOSOMAL REGULAR [Concomitant]

REACTIONS (2)
  - Cerebrovascular accident [None]
  - Therapy cessation [None]

NARRATIVE: CASE EVENT DATE: 20201204
